FAERS Safety Report 9948752 (Version 6)
Quarter: 2014Q2

REPORT INFORMATION
  Report Type: Report from Study
  Country: US (occurrence: US)
  Receive Date: 20140304
  Receipt Date: 20140411
  Transmission Date: 20141212
  Serious: Yes (Hospitalization)
  Sender: FDA-Public Use
  Company Number: US-PFIZER INC-2014029988

PATIENT
  Age: 75 Year
  Sex: Female
  Weight: 60.32 kg

DRUGS (3)
  1. TOFACITINIB CITRATE [Suspect]
     Indication: PSORIASIS
     Dosage: 10 MG, 2X/DAY
     Route: 048
     Dates: start: 20130207, end: 20140301
  2. LOSARTAN [Concomitant]
     Indication: HYPERTENSION
     Dosage: 12.5 MG, OD
     Route: 048
     Dates: start: 20130502
  3. ASPIRIN [Concomitant]
     Indication: CARDIOVASCULAR EVENT PROPHYLAXIS
     Dosage: 81 MG, OD
     Route: 048
     Dates: start: 20131008

REACTIONS (1)
  - Appendicitis [Recovered/Resolved]
